FAERS Safety Report 8792747 (Version 3)
Quarter: 2012Q4

REPORT INFORMATION
  Report Type: Report from Study
  Country: US (occurrence: US)
  Receive Date: 20120918
  Receipt Date: 20121108
  Transmission Date: 20130627
  Serious: Yes (Hospitalization, Other)
  Sender: FDA-Public Use
  Company Number: US-VERTEX PHARMACEUTICAL INC.-2012-021017

PATIENT
  Age: 29 Year
  Sex: Female

DRUGS (2)
  1. VX-770 [Suspect]
     Indication: CYSTIC FIBROSIS
     Dosage: 150 mg, bid
     Route: 048
  2. VORICONAZOLE [Concomitant]

REACTIONS (7)
  - Pseudomonas infection [None]
  - Cholangitis [None]
  - Trichosporon infection [None]
  - Cholelithiasis [None]
  - Infective pulmonary exacerbation of cystic fibrosis [None]
  - Liver function test abnormal [Recovered/Resolved]
  - Drug ineffective [Recovered/Resolved]
